FAERS Safety Report 13643887 (Version 1)
Quarter: 2017Q2

REPORT INFORMATION
  Report Type: Spontaneous
  Country: FR (occurrence: FR)
  Receive Date: 20170612
  Receipt Date: 20170612
  Transmission Date: 20170830
  Serious: Yes (Other)
  Sender: FDA-Public Use
  Company Number: FR-BAYER-2017-108743

PATIENT
  Sex: Female

DRUGS (1)
  1. MIRENA [Suspect]
     Active Substance: LEVONORGESTREL
     Indication: CONTRACEPTION
     Dosage: 20 MCG/24HR, CONT
     Route: 015
     Dates: start: 20080505, end: 20170306

REACTIONS (21)
  - Anxiety [Recovering/Resolving]
  - Palpitations [Recovering/Resolving]
  - Back pain [Recovering/Resolving]
  - Neck pain [Recovering/Resolving]
  - Adnexa uteri pain [Recovering/Resolving]
  - Vertigo [Recovering/Resolving]
  - Syncope [Recovering/Resolving]
  - Hypotension [Recovering/Resolving]
  - Hot flush [Recovering/Resolving]
  - Speech disorder [Recovering/Resolving]
  - Depression [Recovering/Resolving]
  - Hypertrichosis [Recovering/Resolving]
  - Fatigue [Recovering/Resolving]
  - Breast cyst [Recovering/Resolving]
  - Visual impairment [Recovering/Resolving]
  - Amnesia [Recovering/Resolving]
  - Ovarian cyst [Recovering/Resolving]
  - Disturbance in attention [Recovering/Resolving]
  - Paraesthesia [Recovering/Resolving]
  - Breast pain [Recovering/Resolving]
  - Loss of libido [Recovering/Resolving]

NARRATIVE: CASE EVENT DATE: 2013
